FAERS Safety Report 6063955-8 (Version None)
Quarter: 2009Q1

REPORT INFORMATION
  Report Type: 
  Country: None (occurrence: None)
  Receive Date: 20090204
  Receipt Date: 20090128
  Transmission Date: 20090719
  Serious: Yes (Other)
  Sender: FDA-Public Use
  Company Number: PHHY2008BR26144

PATIENT
  Age: 15 Year
  Sex: Male
  Weight: 40 kg

DRUGS (6)
  1. TEGRETOL [Suspect]
     Indication: AFFECTIVE DISORDER
     Dosage: 5 ML MORNING AND AFTERNOON
     Route: 048
  2. TEGRETOL [Suspect]
     Indication: AGITATION
  3. TEGRETOL [Suspect]
     Indication: AGGRESSION
  4. TEGRETOL [Suspect]
     Indication: FEELING ABNORMAL
  5. TEGRETOL [Suspect]
     Indication: ANTISOCIAL BEHAVIOUR
  6. TEGRETOL [Suspect]
     Indication: SCREAMING

REACTIONS (7)
  - AFFECTIVE DISORDER [None]
  - AGGRESSION [None]
  - DELIRIUM [None]
  - DEPRESSED MOOD [None]
  - DEPRESSION [None]
  - HALLUCINATION [None]
  - MALAISE [None]
